FAERS Safety Report 23239979 (Version 4)
Quarter: 2024Q1

REPORT INFORMATION
  Report Type: Spontaneous
  Country: US (occurrence: US)
  Receive Date: 20231129
  Receipt Date: 20240322
  Transmission Date: 20240409
  Serious: No
  Sender: FDA-Public Use
  Company Number: US-PFIZER INC-PV202300146270

PATIENT
  Age: 72 Year
  Sex: Female
  Weight: 81.179 kg

DRUGS (5)
  1. IBRANCE [Suspect]
     Active Substance: PALBOCICLIB
     Indication: Breast cancer metastatic
     Dosage: TAKE 1 TABLET DAILY FOLLOWED BY 7 DAYS OFF, REPEAT EVERY 28 DAYS
     Route: 048
  2. IBRANCE [Suspect]
     Active Substance: PALBOCICLIB
     Dosage: TAKE 75 MG DAILY FOR 21 DAYS THEN OFF 7 DAYS, OFF, REPEAT EVERY 28 DAYS.
     Route: 048
  3. IBRANCE [Suspect]
     Active Substance: PALBOCICLIB
     Dosage: 75 MG
  4. IBRANCE [Suspect]
     Active Substance: PALBOCICLIB
     Dosage: TAKE ONE TABLET FOR 21 DAYS FOLLOWED BY 7 DAYS OFF, REPEAT EVERY 28 DAYS
     Dates: start: 20240319
  5. FASLODEX [Suspect]
     Active Substance: FULVESTRANT

REACTIONS (2)
  - Neoplasm progression [Unknown]
  - Product prescribing error [Unknown]
